FAERS Safety Report 24669130 (Version 2)
Quarter: 2025Q1

REPORT INFORMATION
  Report Type: Spontaneous
  Country: US (occurrence: US)
  Receive Date: 20241127
  Receipt Date: 20250317
  Transmission Date: 20250408
  Serious: Yes (Other)
  Sender: AMGEN
  Company Number: US-AMGEN-USASP2024230340

PATIENT

DRUGS (2)
  1. VECTIBIX [Suspect]
     Active Substance: PANITUMUMAB
     Indication: Product used for unknown indication
     Route: 065
  2. VECTIBIX [Suspect]
     Active Substance: PANITUMUMAB
     Route: 065

REACTIONS (1)
  - Intestinal obstruction [Unknown]
